FAERS Safety Report 21928792 (Version 6)
Quarter: 2023Q2

REPORT INFORMATION
  Report Type: Report from Study
  Country: US (occurrence: US)
  Receive Date: 20230131
  Receipt Date: 20230613
  Transmission Date: 20230722
  Serious: No
  Sender: FDA-Public Use
  Company Number: US-002147023-NVSC2023US018551

PATIENT
  Sex: Female

DRUGS (2)
  1. COSENTYX [Suspect]
     Active Substance: SECUKINUMAB
     Indication: Psoriasis
     Dosage: UNK
     Route: 065
  2. COSENTYX [Suspect]
     Active Substance: SECUKINUMAB
     Dosage: 300 MG/KG (MAR 2023)
     Route: 058

REACTIONS (5)
  - Injection site pain [Unknown]
  - Nervousness [Unknown]
  - Psoriasis [Unknown]
  - Skin haemorrhage [Unknown]
  - Drug dose omission by device [Unknown]
